FAERS Safety Report 24623610 (Version 1)
Quarter: 2024Q4

REPORT INFORMATION
  Report Type: Spontaneous
  Country: GB (occurrence: GB)
  Receive Date: 20241115
  Receipt Date: 20241115
  Transmission Date: 20250115
  Serious: Yes (Other)
  Sender: RANBAXY
  Company Number: GB-SUN PHARMACEUTICAL INDUSTRIES LTD-2024RR-478758

PATIENT
  Sex: Male
  Weight: 88 kg

DRUGS (1)
  1. CIPROFLOXACIN [Suspect]
     Active Substance: CIPROFLOXACIN
     Indication: Adverse drug reaction
     Dosage: 500MG TWICE A DAY
     Route: 065

REACTIONS (2)
  - Medication error [Unknown]
  - Pain [Not Recovered/Not Resolved]
